APPROVED DRUG PRODUCT: ANASTROZOLE
Active Ingredient: ANASTROZOLE
Strength: 1MG
Dosage Form/Route: TABLET;ORAL
Application: A206037 | Product #001 | TE Code: AB
Applicant: BEIJING YILING BIO-ENGINEERING TECHNOLOGY CO LTD
Approved: Nov 9, 2018 | RLD: No | RS: No | Type: RX